FAERS Safety Report 5697317-X (Version None)
Quarter: 2008Q2

REPORT INFORMATION
  Report Type: 
  Country: None (occurrence: None)
  Receive Date: 20080408
  Receipt Date: 20070905
  Transmission Date: 20081010
  Serious: No
  Sender: FDA-Public Use
  Company Number: US-BAYER-US-2007-033380

PATIENT
  Age: 21 Year
  Sex: Female
  Weight: 79 kg

DRUGS (1)
  1. YASMIN [Suspect]
     Indication: MENSTRUAL CYCLE MANAGEMENT
     Route: 048
     Dates: start: 20060801

REACTIONS (1)
  - METRORRHAGIA [None]
